FAERS Safety Report 11992954 (Version 1)
Quarter: 2016Q1

REPORT INFORMATION
  Report Type: Spontaneous
  Country: US (occurrence: None)
  Receive Date: 20160202
  Receipt Date: 20160202
  Transmission Date: 20160526
  Serious: Yes (Hospitalization)
  Sender: FDA-Public Use
  Company Number: None

PATIENT
  Age: 35 Year
  Sex: Female
  Weight: 74.39 kg

DRUGS (4)
  1. PROCHLORPERAZINE 10MG TEVA USA [Suspect]
     Active Substance: PROCHLORPERAZINE
     Indication: NAUSEA
     Route: 048
     Dates: start: 20160129, end: 20160130
  2. DAILY VITAMINS (ONEA DAY DAILY GUMMY VITAMINS) [Concomitant]
  3. VITAMIN D [Concomitant]
     Active Substance: CHOLECALCIFEROL
  4. PROCHLORPERAZINE 10MG TEVA USA [Suspect]
     Active Substance: PROCHLORPERAZINE
     Indication: GASTROINTESTINAL VIRAL INFECTION
     Route: 048
     Dates: start: 20160129, end: 20160130

REACTIONS (6)
  - Swollen tongue [None]
  - Pain [None]
  - Muscle spasms [None]
  - Trismus [None]
  - Speech disorder [None]
  - Jaw disorder [None]

NARRATIVE: CASE EVENT DATE: 20160131
